FAERS Safety Report 9181978 (Version 1)
Quarter: 2012Q4

REPORT INFORMATION
  Report Type: 
  Country: US (occurrence: US)
  Receive Date: 20121030
  Receipt Date: 20121030
  Transmission Date: 20130627
  Serious: Yes (Other)
  Sender: FDA-Public Use
  Company Number: US-AMGEN-USASP2012068693

PATIENT
  Age: 56 Year
  Sex: Male

DRUGS (2)
  1. ENBREL [Suspect]
     Indication: PSORIATIC ARTHROPATHY
     Dosage: 50 mg, qwk
     Dates: start: 20100101, end: 2012
  2. HUMIRA [Concomitant]
     Dosage: UNK

REACTIONS (2)
  - Hernia [Recovered/Resolved]
  - Psoriatic arthropathy [Not Recovered/Not Resolved]
